FAERS Safety Report 25805861 (Version 2)
Quarter: 2025Q4

REPORT INFORMATION
  Report Type: Spontaneous
  Country: US (occurrence: US)
  Receive Date: 20250916
  Receipt Date: 20251224
  Transmission Date: 20260117
  Serious: No
  Sender: SANDOZ
  Company Number: US-SANDOZ-SDZ2025US065421

PATIENT
  Sex: Female

DRUGS (3)
  1. ADALIMUMAB [Suspect]
     Active Substance: ADALIMUMAB
     Indication: Product used for unknown indication
     Dosage: ADALIMUMAB (ADALIMUMAB-ADAZ) 40MG INJECTION, FOR SUBCUTANEOUS USE IN PREFILLED SYRINGE; (ADALIMUMAB 40MG/0.4ML LISY PE. )
  2. ADALIMUMAB [Suspect]
     Active Substance: ADALIMUMAB
  3. ADALIMUMAB [Suspect]
     Active Substance: ADALIMUMAB

REACTIONS (3)
  - Drug dose omission by device [Unknown]
  - Product quality issue [Unknown]
  - Device defective [Unknown]
